FAERS Safety Report 8530451-5 (Version None)
Quarter: 2012Q3

REPORT INFORMATION
  Report Type: 
  Country: None (occurrence: None)
  Receive Date: 20120723
  Receipt Date: 20120718
  Transmission Date: 20120928
  Serious: Yes (Other)
  Sender: FDA-Public Use
  Company Number: JP-SANOFI-AVENTIS-2012SA051760

PATIENT
  Age: 72 Year
  Sex: Female

DRUGS (3)
  1. CISPLATIN [Suspect]
     Route: 065
  2. FLUOROURACIL [Suspect]
     Route: 065
  3. DOCETAXEL [Suspect]
     Route: 065

REACTIONS (6)
  - LEUKOENCEPHALOPATHY [None]
  - DYSARTHRIA [None]
  - DIZZINESS [None]
  - NAUSEA [None]
  - GAIT DISTURBANCE [None]
  - BRADYKINESIA [None]
